FAERS Safety Report 4634957-0 (Version None)
Quarter: 2005Q2

REPORT INFORMATION
  Report Type: 
  Country: None (occurrence: None)
  Receive Date: 20050411
  Receipt Date: 20050330
  Transmission Date: 20051028
  Serious: Yes (Hospitalization)
  Sender: FDA-Public Use
  Company Number: 2005037944

PATIENT
  Age: 75 Year
  Sex: Female
  Weight: 62.5964 kg

DRUGS (5)
  1. CLEOCIN HCL [Suspect]
     Indication: DIVERTICULITIS
     Dosage: 1200 MG (300 MG, EVERY 6 HOURS), ORAL
     Route: 048
     Dates: start: 20050204, end: 20050205
  2. LOSARTAN POTASSIUM [Concomitant]
  3. ISRADIPINE [Concomitant]
  4. ENALAPRIL MALEATE [Concomitant]
  5. CIPROFLOXACIN [Concomitant]

REACTIONS (5)
  - ABDOMINAL PAIN [None]
  - DRUG HYPERSENSITIVITY [None]
  - EYE SWELLING [None]
  - OCULAR HYPERAEMIA [None]
  - TONGUE COATED [None]
